FAERS Safety Report 8508339-5 (Version None)
Quarter: 2012Q3

REPORT INFORMATION
  Report Type: 
  Country: None (occurrence: None)
  Receive Date: 20120713
  Receipt Date: 20120704
  Transmission Date: 20120928
  Serious: Yes (Hospitalization, Other)
  Sender: FDA-Public Use
  Company Number: CA-JNJFOC-20120702452

PATIENT
  Sex: Female
  Weight: 81.7 kg

DRUGS (3)
  1. REMICADE [Suspect]
     Indication: CROHN'S DISEASE
     Route: 042
     Dates: start: 20111026
  2. PREDNISONE [Concomitant]
     Route: 065
  3. IMURAN [Concomitant]
     Dosage: 4 TABLETS
     Route: 048

REACTIONS (2)
  - INTESTINAL RESECTION [None]
  - THERAPEUTIC RESPONSE DECREASED [None]
